FAERS Safety Report 9288701 (Version 1)
Quarter: 2013Q2

REPORT INFORMATION
  Report Type: Spontaneous
  Country: US (occurrence: US)
  Receive Date: 20130514
  Receipt Date: 20130514
  Transmission Date: 20140414
  Serious: No
  Sender: FDA-Public Use
  Company Number: US-MYLANLABS-2012S1026245

PATIENT
  Sex: Female

DRUGS (1)
  1. METHYLDOPA TABLETS [Suspect]
     Indication: BLOOD PRESSURE INCREASED

REACTIONS (2)
  - Dry eye [Not Recovered/Not Resolved]
  - Pruritus [Not Recovered/Not Resolved]
